FAERS Safety Report 9540868 (Version 2)
Quarter: 2013Q4

REPORT INFORMATION
  Report Type: Spontaneous
  Country: IT (occurrence: IT)
  Receive Date: 20130920
  Receipt Date: 20131010
  Transmission Date: 20140711
  Serious: Yes (Other)
  Sender: FDA-Public Use
  Company Number: PHHY2013IT104955

PATIENT
  Sex: Female

DRUGS (4)
  1. TEGRETOL [Suspect]
     Dosage: UNK UKN, UNK
     Dates: start: 20130101, end: 20130704
  2. STILNOX [Suspect]
     Dosage: UNK UKN, UNK
     Dates: start: 20130101, end: 20130704
  3. GARDENALE [Suspect]
     Dosage: UNK UKN, UNK
     Dates: start: 20130101, end: 20130704
  4. KEPPRA [Suspect]
     Dosage: UNK UKN, UNK
     Dates: start: 20130101, end: 20130704

REACTIONS (1)
  - Loss of consciousness [Recovered/Resolved]
